FAERS Safety Report 5810166-4 (Version None)
Quarter: 2008Q3

REPORT INFORMATION
  Report Type: 
  Country: None (occurrence: None)
  Receive Date: 20080715
  Receipt Date: 20070830
  Transmission Date: 20090109
  Serious: No
  Sender: FDA-Public Use
  Company Number: A0677773A

PATIENT
  Age: 43 Year
  Sex: Female

DRUGS (2)
  1. IMITREX [Suspect]
     Indication: MIGRAINE
  2. LEXAPRO [Concomitant]

REACTIONS (1)
  - DRUG INEFFECTIVE [None]
